FAERS Safety Report 11438155 (Version 1)
Quarter: 2015Q3

REPORT INFORMATION
  Report Type: Other
  Country: IT (occurrence: IT)
  Receive Date: 20150901
  Receipt Date: 20150901
  Transmission Date: 20151125
  Serious: Yes (Hospitalization)
  Sender: FDA-Public Use
  Company Number: IT-NOVEN PHARMACEUTICALS, INC.-14IT010384

PATIENT
  Age: 52 Year
  Sex: Male

DRUGS (2)
  1. PAROXETINE [Suspect]
     Active Substance: PAROXETINE\PAROXETINE HYDROCHLORIDE
     Indication: DRUG ABUSE
     Dosage: 30 DF, SINGLE
     Route: 048
     Dates: start: 20140902, end: 20140902
  2. TRILAFON [Concomitant]
     Active Substance: PERPHENAZINE
     Indication: DRUG ABUSE
     Dosage: 20 MG, TOTAL (2 MG TABLETS)
     Route: 048
     Dates: start: 20140902, end: 20140902

REACTIONS (2)
  - Drug abuse [Recovered/Resolved]
  - Sopor [Recovered/Resolved]

NARRATIVE: CASE EVENT DATE: 20140902
